FAERS Safety Report 20922217 (Version 21)
Quarter: 2023Q4

REPORT INFORMATION
  Report Type: Spontaneous
  Country: US (occurrence: US)
  Receive Date: 20220607
  Receipt Date: 20231205
  Transmission Date: 20240109
  Serious: Yes (Hospitalization, Other)
  Sender: FDA-Public Use
  Company Number: US-GLAXOSMITHKLINE-US2022AMR086356

PATIENT

DRUGS (6)
  1. ZEJULA [Suspect]
     Active Substance: NIRAPARIB
     Indication: Ovarian cancer
     Dosage: 300 MG, QD
     Route: 048
     Dates: end: 20220705
  2. ZEJULA [Suspect]
     Active Substance: NIRAPARIB
     Dosage: 300 MG, QD
     Dates: start: 20220804
  3. ZEJULA [Suspect]
     Active Substance: NIRAPARIB
     Dosage: 200 MG, QD
  4. ZEJULA [Suspect]
     Active Substance: NIRAPARIB
     Dosage: 200 MG, QD
     Dates: end: 20230425
  5. ZEJULA [Suspect]
     Active Substance: NIRAPARIB
     Dosage: 100 MG, QD
     Dates: start: 20230529
  6. ZEJULA [Suspect]
     Active Substance: NIRAPARIB
     Indication: Ovarian cancer
     Dosage: 200 MG, QD

REACTIONS (22)
  - Infection [Unknown]
  - Dizziness [Not Recovered/Not Resolved]
  - Urinary tract infection [Not Recovered/Not Resolved]
  - Accident [Unknown]
  - Asthenia [Not Recovered/Not Resolved]
  - Haemoglobin decreased [Not Recovered/Not Resolved]
  - Malaise [Not Recovered/Not Resolved]
  - Appendicitis [Unknown]
  - Lower respiratory tract infection [Unknown]
  - Nausea [Recovering/Resolving]
  - Energy increased [Unknown]
  - Platelet count decreased [Unknown]
  - Blood test abnormal [Unknown]
  - Abdominal pain [Unknown]
  - Appendicolith [Unknown]
  - Weight decreased [Unknown]
  - Laboratory test abnormal [Unknown]
  - Potentiating drug interaction [Unknown]
  - Ageusia [Unknown]
  - Sinus disorder [Unknown]
  - Hypersensitivity [Unknown]
  - Therapeutic response unexpected [Unknown]
